FAERS Safety Report 20423386 (Version 2)
Quarter: 2022Q1

REPORT INFORMATION
  Report Type: Spontaneous
  Country: US (occurrence: US)
  Receive Date: 20220203
  Receipt Date: 20220215
  Transmission Date: 20220424
  Serious: Yes (Other)
  Sender: FDA-Public Use
  Company Number: US-ALLERGAN-2204134US

PATIENT
  Sex: Male

DRUGS (4)
  1. ALPHAGAN P [Suspect]
     Active Substance: BRIMONIDINE TARTRATE
     Indication: Glaucoma
     Dosage: 1 GTT, BID (1 DROP IN AM AND 1 DROP BEFORE BEDTIME)
     Dates: end: 20220125
  2. ALPHAGAN P [Suspect]
     Active Substance: BRIMONIDINE TARTRATE
     Dosage: 1 GTT, BID (1 DROP IN AM AND 1 DROP BEFORE BEDTIME)
     Dates: end: 20220125
  3. LOSARTAN [Concomitant]
     Active Substance: LOSARTAN
     Indication: Hypertension
     Dosage: 25 MG, QD
  4. ATORVASTATIN [Concomitant]
     Active Substance: ATORVASTATIN
     Indication: Blood cholesterol increased
     Dosage: 40 MG, QD

REACTIONS (7)
  - Coronary artery occlusion [Unknown]
  - Eyelid thickening [Recovering/Resolving]
  - Kidney enlargement [Unknown]
  - Cardiomegaly [Unknown]
  - Ocular hyperaemia [Recovering/Resolving]
  - Drug hypersensitivity [Recovering/Resolving]
  - Eye pruritus [Recovering/Resolving]

NARRATIVE: CASE EVENT DATE: 20210601
